FAERS Safety Report 10986003 (Version 1)
Quarter: 2015Q2

REPORT INFORMATION
  Report Type: Spontaneous
  Country: US (occurrence: None)
  Receive Date: 20150403
  Receipt Date: 20150403
  Transmission Date: 20150821
  Serious: Yes (Hospitalization)
  Sender: FDA-Public Use
  Company Number: None

PATIENT
  Age: 37 Year
  Sex: Male
  Weight: 90 kg

DRUGS (1)
  1. IBUPROFEN. [Suspect]
     Active Substance: IBUPROFEN
     Indication: PAIN
     Route: 048
     Dates: start: 20150226, end: 20150303

REACTIONS (4)
  - Duodenal perforation [None]
  - Haemorrhage [None]
  - Duodenal ulcer [None]
  - Abdominal pain upper [None]

NARRATIVE: CASE EVENT DATE: 20150303
